FAERS Safety Report 4625889-2 (Version None)
Quarter: 2005Q1

REPORT INFORMATION
  Report Type: 
  Country: None (occurrence: None)
  Receive Date: 20050330
  Receipt Date: 20050316
  Transmission Date: 20050727
  Serious: Yes (Death, Hospitalization)
  Sender: FDA-Public Use
  Company Number: US_0502112390

PATIENT
  Age: 34 Year
  Sex: Male
  Weight: 100 kg

DRUGS (3)
  1. ZYPREXA [Suspect]
     Indication: PSYCHOMOTOR AGITATION
     Dates: end: 20040701
  2. MIDAZOLAM HCL [Concomitant]
  3. DIAZEPAM [Concomitant]

REACTIONS (4)
  - CARDIAC FAILURE [None]
  - DRUG TOXICITY [None]
  - HYPOTENSION [None]
  - MULTI-ORGAN FAILURE [None]
